FAERS Safety Report 18580047 (Version 1)
Quarter: 2020Q4

REPORT INFORMATION
  Report Type: Not Available
  Country: None (occurrence: CZ)
  Receive Date: 20201204
  Receipt Date: 20201204
  Transmission Date: 20210114
  Serious: Yes (Hospitalization)
  Sender: FDA-Public Use
  Company Number: CZ-ORION CORPORATION ORION PHARMA-TREX2020-2287

PATIENT
  Age: 86 Year
  Sex: Female

DRUGS (19)
  1. ACIDUM FOLICUM [Interacting]
     Active Substance: FOLIC ACID
     Indication: PRODUCT USED FOR UNKNOWN INDICATION
     Dosage: DOSE: 1-0-0 (MONDAY)
     Route: 065
  2. CALCICHEW D3 [Interacting]
     Active Substance: CALCIUM\CHOLECALCIFEROL
     Indication: PRODUCT USED FOR UNKNOWN INDICATION
     Dosage: DOSE: 0-0-1
     Route: 065
  3. GUTTALAX [BISACODYL] [Interacting]
     Active Substance: BISACODYL
     Indication: CONSTIPATION
     Dosage: 10-20 GTT?IN THE EVENING
     Route: 065
  4. METHOTREXATE. [Suspect]
     Active Substance: METHOTREXATE
     Indication: RHEUMATOID ARTHRITIS
     Dosage: 1-0-0 (SUNDAY)
     Route: 048
     Dates: start: 2010
  5. ORAMELLOX [Interacting]
     Active Substance: MELOXICAM
     Indication: PAIN
     Dosage: STRENGTH: 15 MG?TAKEN APPROX. 3 TIMES PER WEEK
     Route: 065
  6. ELIQUIS [Interacting]
     Active Substance: APIXABAN
     Indication: PRODUCT USED FOR UNKNOWN INDICATION
     Dosage: STRENGTH: 5 MG?DOSE: 1-0-1
     Route: 065
  7. AGEN [Interacting]
     Active Substance: AMLODIPINE BESYLATE
     Indication: PRODUCT USED FOR UNKNOWN INDICATION
     Dosage: STRENGTH: 5 MG?DOSE: 1-0-0
     Route: 065
  8. PREDNISONE. [Interacting]
     Active Substance: PREDNISONE
     Indication: PRODUCT USED FOR UNKNOWN INDICATION
     Dosage: STRENGTH: 5 MG?DOSE: 1-0-0
     Route: 065
  9. ROSUCARD [Interacting]
     Active Substance: ROSUVASTATIN CALCIUM
     Indication: PRODUCT USED FOR UNKNOWN INDICATION
     Dosage: STRENGTH: 20 MG?DOSE: 0-0-1
     Route: 065
  10. CONDROSULF [Interacting]
     Active Substance: SODIUM CHONDROITIN SULFATE
     Indication: PRODUCT USED FOR UNKNOWN INDICATION
     Dosage: STRENGTH: 800 MG?DOSE: 0-0-1
     Route: 065
  11. DUROGESIC [Interacting]
     Active Substance: FENTANYL
     Indication: PAIN
     Dosage: 25 MICROGRAM/H A 72 HOURS
     Route: 062
  12. EUTHYROX [Interacting]
     Active Substance: LEVOTHYROXINE SODIUM
     Indication: PRODUCT USED FOR UNKNOWN INDICATION
     Dosage: STRENGTH: 100 MICROGRAM/TABLET?DOSE: 1-0-0
     Route: 065
  13. CONTROLOC [Interacting]
     Active Substance: PANTOPRAZOLE SODIUM
     Indication: PRODUCT USED FOR UNKNOWN INDICATION
     Dosage: STRENGTH: 20 MG?DOSE: 1-0-0
     Route: 065
  14. TEZEO [Interacting]
     Active Substance: TELMISARTAN
     Indication: PRODUCT USED FOR UNKNOWN INDICATION
     Dosage: STRENGTH: 80/12.5 MG?DOSE: 1-0-0
     Route: 065
  15. BETALOC ZOK [Interacting]
     Active Substance: METOPROLOL SUCCINATE
     Indication: PRODUCT USED FOR UNKNOWN INDICATION
     Dosage: STRENGTH: 25 MG?DOSE: 1-0-0
     Route: 065
  16. PANADOL [Interacting]
     Active Substance: ACETAMINOPHEN
     Indication: PRODUCT USED FOR UNKNOWN INDICATION
     Dosage: STRENGTH: 500 MG?3-4 TIMES PER DAY
     Route: 065
  17. CORDARONE [Interacting]
     Active Substance: AMIODARONE HYDROCHLORIDE
     Indication: PRODUCT USED FOR UNKNOWN INDICATION
     Dosage: STRENGTH: 200 MG?DOSE: 1-0-0
     Route: 065
  18. CARDILAN [NICOFURANOSE] [Interacting]
     Active Substance: NICOFURANOSE
     Indication: PRODUCT USED FOR UNKNOWN INDICATION
     Dosage: DOSE: 0-1-0
     Route: 065
  19. NOVALGIN (METAMIZOLE SODIUM) [Interacting]
     Active Substance: METAMIZOLE SODIUM
     Indication: PRODUCT USED FOR UNKNOWN INDICATION
     Dosage: STRENGTH: 500 MG?DOSE: 1-0-1
     Route: 065

REACTIONS (5)
  - Encephalopathy [Recovering/Resolving]
  - Drug interaction [Recovered/Resolved]
  - Medication error [Recovered/Resolved]
  - Delirium [Recovering/Resolving]
  - General physical health deterioration [Recovering/Resolving]

NARRATIVE: CASE EVENT DATE: 2019
